FAERS Safety Report 16449747 (Version 1)
Quarter: 2019Q2

REPORT INFORMATION
  Report Type: Spontaneous
  Country: DE (occurrence: DE)
  Receive Date: 20190619
  Receipt Date: 20190619
  Transmission Date: 20190711
  Serious: Yes (Other)
  Sender: FDA-Public Use
  Company Number: DE-ROCHE-2335606

PATIENT
  Age: 39 Year
  Sex: Female

DRUGS (26)
  1. CAPECITABINE. [Suspect]
     Active Substance: CAPECITABINE
     Indication: OFF LABEL USE
  2. TEMSIROLIMUS. [Suspect]
     Active Substance: TEMSIROLIMUS
     Indication: INVASIVE DUCTAL BREAST CARCINOMA
     Dosage: UNK
     Route: 065
  3. DOXYCYCLINE. [Concomitant]
     Active Substance: DOXYCYCLINE
     Indication: OFF LABEL USE
  4. ATORVASTATIN [Concomitant]
     Active Substance: ATORVASTATIN
     Indication: OFF LABEL USE
  5. CISPLATIN. [Suspect]
     Active Substance: CISPLATIN
     Indication: OFF LABEL USE
  6. QUERCETIN [Concomitant]
     Active Substance: QUERCETIN
     Indication: PRODUCT USED FOR UNKNOWN INDICATION
     Dosage: UNK
     Route: 065
  7. CYCLOPHOSPHAMIDE. [Suspect]
     Active Substance: CYCLOPHOSPHAMIDE
     Indication: INVASIVE DUCTAL BREAST CARCINOMA
     Dosage: UNK
     Route: 065
     Dates: end: 201807
  8. DOXYCYCLINE. [Concomitant]
     Active Substance: DOXYCYCLINE
     Indication: PRODUCT USED FOR UNKNOWN INDICATION
     Dosage: UNK
     Route: 065
  9. QUERCETIN [Concomitant]
     Active Substance: QUERCETIN
     Indication: OFF LABEL USE
  10. BEVACIZUMAB. [Suspect]
     Active Substance: BEVACIZUMAB
     Indication: INVASIVE DUCTAL BREAST CARCINOMA
     Dosage: UNK
     Route: 065
  11. BEVACIZUMAB. [Suspect]
     Active Substance: BEVACIZUMAB
     Indication: OFF LABEL USE
  12. PACLITAXEL. [Suspect]
     Active Substance: PACLITAXEL
     Indication: INVASIVE DUCTAL BREAST CARCINOMA
     Dosage: UNK
     Route: 065
     Dates: end: 201807
  13. BICALUTAMIDE. [Suspect]
     Active Substance: BICALUTAMIDE
     Indication: INVASIVE DUCTAL BREAST CARCINOMA
     Dosage: UNK
     Route: 065
  14. TEMSIROLIMUS. [Suspect]
     Active Substance: TEMSIROLIMUS
     Indication: OFF LABEL USE
  15. METHOTREXATE. [Suspect]
     Active Substance: METHOTREXATE
     Indication: INVASIVE DUCTAL BREAST CARCINOMA
     Dosage: UNK
     Route: 065
  16. CISPLATIN. [Suspect]
     Active Substance: CISPLATIN
     Indication: INVASIVE DUCTAL BREAST CARCINOMA
     Dosage: UNK
     Route: 065
  17. CAPECITABINE. [Suspect]
     Active Substance: CAPECITABINE
     Indication: INVASIVE DUCTAL BREAST CARCINOMA
     Dosage: UNK
     Route: 048
  18. GEMCITABINE [Suspect]
     Active Substance: GEMCITABINE\GEMCITABINE HYDROCHLORIDE
     Indication: INVASIVE DUCTAL BREAST CARCINOMA
     Dosage: UNK
     Route: 065
     Dates: end: 201807
  19. CYCLOPHOSPHAMIDE. [Suspect]
     Active Substance: CYCLOPHOSPHAMIDE
     Indication: OFF LABEL USE
  20. ATORVASTATIN [Concomitant]
     Active Substance: ATORVASTATIN
     Indication: PRODUCT USED FOR UNKNOWN INDICATION
     Dosage: UNK
     Route: 065
  21. BICALUTAMIDE. [Suspect]
     Active Substance: BICALUTAMIDE
     Indication: OFF LABEL USE
  22. METHOTREXATE. [Suspect]
     Active Substance: METHOTREXATE
     Indication: OFF LABEL USE
  23. EVEROLIMUS. [Suspect]
     Active Substance: EVEROLIMUS
     Indication: INVASIVE DUCTAL BREAST CARCINOMA
     Dosage: UNK
     Route: 065
  24. GEMCITABINE [Suspect]
     Active Substance: GEMCITABINE\GEMCITABINE HYDROCHLORIDE
     Indication: OFF LABEL USE
  25. PACLITAXEL. [Suspect]
     Active Substance: PACLITAXEL
     Indication: OFF LABEL USE
  26. EVEROLIMUS. [Suspect]
     Active Substance: EVEROLIMUS
     Indication: OFF LABEL USE

REACTIONS (5)
  - Metastases to lung [Recovering/Resolving]
  - Off label use [Unknown]
  - Malignant neoplasm progression [Unknown]
  - Metastases to liver [Recovering/Resolving]
  - Product use in unapproved indication [Unknown]
